FAERS Safety Report 4273289-X (Version None)
Quarter: 2004Q1

REPORT INFORMATION
  Report Type: 
  Country: None (occurrence: None)
  Receive Date: 20040115
  Receipt Date: 20040115
  Transmission Date: 20041129
  Serious: Yes (Hospitalization, Other)
  Sender: FDA-Public Use
  Company Number: None

PATIENT
  Age: 76 Year
  Sex: Male
  Weight: 112 kg

DRUGS (10)
  1. COUMADIN [Suspect]
     Indication: CONGESTIVE CARDIOMYOPATHY
     Dosage: SEE IMAGE
     Dates: start: 20011201, end: 20030901
  2. ZOCOR [Concomitant]
  3. ACIPHEX [Concomitant]
  4. LASIX [Concomitant]
  5. MONOPRIL [Concomitant]
  6. COREG [Concomitant]
  7. COLCHINE [Concomitant]
  8. ALLOPURINOL [Concomitant]
  9. SPIRONOLACTONE [Concomitant]
  10. NITRO SL [Concomitant]

REACTIONS (3)
  - CARDIAC FAILURE CONGESTIVE [None]
  - DRUG TOXICITY [None]
  - INTERNATIONAL NORMALISED RATIO INCREASED [None]
